FAERS Safety Report 18199853 (Version 1)
Quarter: 2020Q3

REPORT INFORMATION
  Report Type: Spontaneous
  Country: US (occurrence: US)
  Receive Date: 20200827
  Receipt Date: 20200827
  Transmission Date: 20201103
  Serious: No
  Sender: FDA-Public Use
  Company Number: US-ASTRAZENECA-2020SF05609

PATIENT
  Age: 78 Year
  Sex: Female
  Weight: 97.5 kg

DRUGS (2)
  1. FARXIGA [Suspect]
     Active Substance: DAPAGLIFLOZIN PROPANEDIOL
     Indication: DIABETES MELLITUS
     Route: 048
  2. FARXIGA [Suspect]
     Active Substance: DAPAGLIFLOZIN PROPANEDIOL
     Indication: LOCALISED INFECTION
     Route: 048

REACTIONS (2)
  - Urine abnormality [Not Recovered/Not Resolved]
  - Urinary incontinence [Not Recovered/Not Resolved]
